FAERS Safety Report 7436900-8 (Version None)
Quarter: 2011Q2

REPORT INFORMATION
  Report Type: 
  Country: None (occurrence: None)
  Receive Date: 20110426
  Receipt Date: 20110415
  Transmission Date: 20111010
  Serious: Yes (Life-Threatening, Hospitalization)
  Sender: FDA-Public Use
  Company Number: US-SANOFI-AVENTIS-2010SA027823

PATIENT
  Age: 63 Year
  Sex: Male
  Weight: 104.5 kg

DRUGS (24)
  1. NORMAL SALINE [Concomitant]
     Indication: PROPHYLAXIS
     Route: 042
     Dates: start: 20100401, end: 20100422
  2. DEXAMETHASONE [Concomitant]
     Indication: PROPHYLAXIS
     Dates: start: 20100401, end: 20100422
  3. DEXAMETHASONE [Concomitant]
     Dates: start: 20100422, end: 20100422
  4. CABAZITAXEL [Suspect]
     Route: 042
     Dates: start: 20100422, end: 20100422
  5. WARFARIN [Concomitant]
  6. CISPLATIN [Suspect]
     Route: 042
     Dates: start: 20100422, end: 20100422
  7. APREPITANT [Concomitant]
     Dates: start: 20100422, end: 20100422
  8. APREPITANT [Concomitant]
     Dates: start: 20100423, end: 20100423
  9. LOVENOX [Concomitant]
     Indication: DEEP VEIN THROMBOSIS
  10. CISPLATIN [Suspect]
     Route: 042
     Dates: start: 20100401, end: 20100401
  11. HYDROCHLOROTHIAZIDE [Concomitant]
  12. FAMOTIDINE [Concomitant]
     Indication: PROPHYLAXIS
     Dates: start: 20100401, end: 20100422
  13. ALOXI [Concomitant]
     Indication: PROPHYLAXIS
     Dates: start: 20100401, end: 20100422
  14. CABAZITAXEL [Suspect]
     Route: 042
     Dates: start: 20100401, end: 20100401
  15. CABAZITAXEL [Suspect]
     Route: 042
     Dates: start: 20100510, end: 20100510
  16. CELEBREX [Concomitant]
  17. DIPHENHYDRAMINE [Concomitant]
     Indication: PROPHYLAXIS
     Dates: start: 20100401, end: 20100422
  18. CISPLATIN [Suspect]
     Route: 042
     Dates: start: 20100510, end: 20100510
  19. CYMBALTA [Concomitant]
  20. DIPHENHYDRAMINE [Concomitant]
     Dates: start: 20100422, end: 20100422
  21. CIPROFLOXACIN [Concomitant]
     Dates: start: 20100506
  22. APREPITANT [Concomitant]
     Dates: start: 20100424, end: 20100424
  23. FLAGYL [Concomitant]
     Dates: start: 20100506
  24. MULTI-VITAMINS [Concomitant]

REACTIONS (4)
  - DUODENAL ULCER [None]
  - LARGE INTESTINAL HAEMORRHAGE [None]
  - SMALL INTESTINAL HAEMORRHAGE [None]
  - HAEMORRHAGIC ANAEMIA [None]
